FAERS Safety Report 20474600 (Version 1)
Quarter: 2022Q1

REPORT INFORMATION
  Report Type: Spontaneous
  Country: US (occurrence: None)
  Receive Date: 20220214
  Receipt Date: 20220214
  Transmission Date: 20220424
  Serious: Yes (Death)
  Sender: FDA-Public Use
  Company Number: None

PATIENT
  Age: 67 Year
  Sex: Female
  Weight: 94 kg

DRUGS (1)
  1. BARICITINIB [Suspect]
     Active Substance: BARICITINIB
     Indication: COVID-19
     Dates: start: 20220125, end: 20220204

REACTIONS (7)
  - Leukocytosis [None]
  - Pyrexia [None]
  - Blood lactic acid increased [None]
  - Tachycardia [None]
  - Hypertension [None]
  - Sepsis [None]
  - Pneumonia bacterial [None]

NARRATIVE: CASE EVENT DATE: 20220213
